FAERS Safety Report 20923196 (Version 1)
Quarter: 2022Q2

REPORT INFORMATION
  Report Type: Spontaneous
  Country: US (occurrence: US)
  Receive Date: 20220607
  Receipt Date: 20220607
  Transmission Date: 20220720
  Serious: No
  Sender: FDA-Public Use
  Company Number: US-GLENMARK PHARMACEUTICALS-2022GMK071767

PATIENT

DRUGS (2)
  1. HYDROCHLOROTHIAZIDE\TELMISARTAN [Suspect]
     Active Substance: HYDROCHLOROTHIAZIDE\TELMISARTAN
     Indication: Blood pressure abnormal
     Dosage: 1 DOSAGE FORM, QD
     Route: 048
  2. HYDROCHLOROTHIAZIDE\TELMISARTAN [Suspect]
     Active Substance: HYDROCHLOROTHIAZIDE\TELMISARTAN
     Dosage: 1 DOSAGE FORM, QD
     Route: 048

REACTIONS (3)
  - Product administration error [Unknown]
  - Product physical issue [Unknown]
  - Product quality issue [Unknown]
